FAERS Safety Report 5655607-0 (Version None)
Quarter: 2008Q1

REPORT INFORMATION
  Report Type: 
  Country: None (occurrence: None)
  Receive Date: 20080307
  Receipt Date: 20080304
  Transmission Date: 20080703
  Serious: Yes (Other)
  Sender: FDA-Public Use
  Company Number: GB-JNJFOC-20080301316

PATIENT
  Sex: Female

DRUGS (3)
  1. HALDOL [Suspect]
     Route: 065
  2. HALDOL [Suspect]
     Indication: ABNORMAL BEHAVIOUR
     Route: 065
  3. HALDOL [Suspect]
     Indication: LEARNING DISABILITY
     Route: 065

REACTIONS (4)
  - ABNORMAL BEHAVIOUR [None]
  - BLOOD PROLACTIN INCREASED [None]
  - BREAST TENDERNESS [None]
  - WEIGHT INCREASED [None]
